FAERS Safety Report 9626232 (Version 2)
Quarter: 2013Q4

REPORT INFORMATION
  Report Type: Spontaneous
  Country: NL (occurrence: NL)
  Receive Date: 20131016
  Receipt Date: 20131202
  Transmission Date: 20140711
  Serious: Yes (Other)
  Sender: FDA-Public Use
  Company Number: NL-TEVA-436592ISR

PATIENT
  Age: 35 Year
  Sex: Female
  Weight: 72 kg

DRUGS (6)
  1. IBUPROFEN BRUISGRANULAAT 400MG [Suspect]
     Indication: OROPHARYNGEAL PAIN
     Dosage: EXTRA INFO: EXTRA INFO: A COUPLE OF TABLETS, UNKNOWN HOW MUCH
     Route: 048
     Dates: start: 20130919, end: 20130923
  2. NAPROXEN ZETPIL 500MG [Suspect]
     Indication: OROPHARYNGEAL PAIN
     Dosage: EXTRA INFO: EXTRA INFO: TAKEN SEVERAL TIMES
     Route: 054
     Dates: start: 20130921, end: 20130923
  3. FLUCONAZOL CAPSULE 50MG [Concomitant]
     Dosage: 100 MILLIGRAM DAILY;
     Route: 048
  4. PARACETAMOL TABLET 1000MG [Concomitant]
     Dosage: 4000 MILLIGRAM DAILY;
     Route: 048
  5. NON SPECIFIED O.A.C. [Concomitant]
     Route: 048
  6. AMOXICILLINE/CLAVULAANZUUR TABLET 500/125MG [Concomitant]
     Dosage: 3 DOSAGE FORMS DAILY;
     Route: 048

REACTIONS (3)
  - Agranulocytosis [Recovered/Resolved]
  - Neutropenia [Recovered/Resolved]
  - Tonsillitis [Recovered/Resolved]
